FAERS Safety Report 17765926 (Version 1)
Quarter: 2020Q2

REPORT INFORMATION
  Report Type: Spontaneous
  Country: CH (occurrence: CH)
  Receive Date: 20200511
  Receipt Date: 20200511
  Transmission Date: 20200714
  Serious: Yes (Hospitalization)
  Sender: FDA-Public Use
  Company Number: CH-HORIZON-VIM-0061-2020

PATIENT
  Age: 65 Year
  Sex: Female

DRUGS (5)
  1. DIOVAN [Concomitant]
     Active Substance: VALSARTAN
  2. QUETIAPIN SPIRIG [Concomitant]
  3. ROSUVASTATIN. [Concomitant]
     Active Substance: ROSUVASTATIN
  4. FLOXYFRAL BRUCHRILLE [Suspect]
     Active Substance: FLUVOXAMINE MALEATE
     Indication: PRODUCT USED FOR UNKNOWN INDICATION
     Dosage: 75MG
     Route: 048
  5. VIMOVO [Suspect]
     Active Substance: ESOMEPRAZOLE MAGNESIUM\NAPROXEN
     Indication: PRODUCT USED FOR UNKNOWN INDICATION
     Route: 048
     Dates: start: 20200322, end: 20200322

REACTIONS (2)
  - Hyponatraemia [Recovered/Resolved]
  - Incorrect dose administered [Recovered/Resolved]

NARRATIVE: CASE EVENT DATE: 20200322
